FAERS Safety Report 6642433-9 (Version None)
Quarter: 2010Q1

REPORT INFORMATION
  Report Type: 
  Country: None (occurrence: None)
  Receive Date: 20100319
  Receipt Date: 20100309
  Transmission Date: 20100710
  Serious: Yes (Other)
  Sender: FDA-Public Use
  Company Number: US-PFIZER INC-2006105679

PATIENT
  Sex: Female
  Weight: 96.2 kg

DRUGS (19)
  1. CHANTIX [Suspect]
     Dosage: UNK
     Route: 048
     Dates: start: 20060818
  2. ZYPREXA [Interacting]
     Dosage: UNK
  3. KLONOPIN [Concomitant]
     Indication: SLEEP DISORDER
     Dosage: 1 MG, 3X/DAY
  4. WELLBUTRIN [Concomitant]
     Indication: DEPRESSION
  5. PAXIL [Concomitant]
     Indication: DEPRESSION
  6. TRAZODONE HCL [Concomitant]
     Dosage: 150 MG, 1X/DAY
  7. SKELAXIN [Concomitant]
  8. DARVOCET [Concomitant]
     Indication: BACK DISORDER
     Dosage: 100 MG, AS NEEDED
  9. ESTRACE [Concomitant]
     Dosage: 5 MG, 1X/DAY
  10. AMITRIPTYLINE [Concomitant]
     Dosage: 15 MG, UNK
  11. NEURONTIN [Concomitant]
     Dosage: 600 MG, 2X/DAY
  12. PRILOSEC [Concomitant]
     Dosage: 20 MG, 2X/DAY
  13. FLEXERIL [Concomitant]
     Dosage: 0.5 MG, 2X/DAY
  14. SYNTHROID [Concomitant]
     Dosage: 25 MG, UNK
  15. MIRALAX [Concomitant]
     Indication: CONSTIPATION
     Dosage: 17 G, UNK
  16. SEROQUEL [Concomitant]
     Dosage: 25 MG, 2X/DAY
  17. TOPAMAX [Concomitant]
     Dosage: 100 MG, 2X/DAY
  18. MOBIC [Concomitant]
     Dosage: 15 MG, 1X/DAY
  19. VENLAFAXINE HYDROCHLORIDE [Concomitant]
     Dosage: 150 MG, 3X/DAY

REACTIONS (12)
  - ABNORMAL DREAMS [None]
  - ANGER [None]
  - CONSTIPATION [None]
  - DEPRESSION [None]
  - DRUG INTERACTION [None]
  - DRY MOUTH [None]
  - EMOTIONAL DISORDER [None]
  - INSOMNIA [None]
  - IRRITABILITY [None]
  - MEMORY IMPAIRMENT [None]
  - MOOD ALTERED [None]
  - RESTLESSNESS [None]
